FAERS Safety Report 4672903-4 (Version None)
Quarter: 2005Q2

REPORT INFORMATION
  Report Type: 
  Country: None (occurrence: None)
  Receive Date: 20050523
  Receipt Date: 20050509
  Transmission Date: 20051028
  Serious: Yes (Hospitalization, Other)
  Sender: FDA-Public Use
  Company Number: HQWYE846125JAN05

PATIENT
  Age: 67 Year
  Sex: Male
  Weight: 131.21 kg

DRUGS (4)
  1. RAPAMUNE [Suspect]
     Indication: PROPHYLAXIS AGAINST TRANSPLANT REJECTION
     Dosage: 6 MG 1X PER 1 DAY ORAL
     Route: 048
     Dates: start: 20041102, end: 20050113
  2. ASPIRIN [Concomitant]
  3. PRAVACHOL [Concomitant]
  4. LEVAQUIN [Concomitant]

REACTIONS (25)
  - ALANINE AMINOTRANSFERASE INCREASED [None]
  - ASPARTATE AMINOTRANSFERASE INCREASED [None]
  - BILIARY ANASTOMOSIS COMPLICATION [None]
  - BILIARY DILATATION [None]
  - BLADDER CANCER [None]
  - BLADDER NEOPLASM [None]
  - BLOOD ALKALINE PHOSPHATASE INCREASED [None]
  - BLOOD CREATININE INCREASED [None]
  - BLOOD GLUCOSE INCREASED [None]
  - BLOOD LACTATE DEHYDROGENASE INCREASED [None]
  - BLOOD PRESSURE SYSTOLIC INCREASED [None]
  - BLOOD TRIGLYCERIDES INCREASED [None]
  - BLOOD UREA INCREASED [None]
  - COUGH [None]
  - FATIGUE [None]
  - HAEMATOCRIT DECREASED [None]
  - HAEMOGLOBIN DECREASED [None]
  - HIGH DENSITY LIPOPROTEIN DECREASED [None]
  - NASOPHARYNGITIS [None]
  - RASH GENERALISED [None]
  - RASH PRURITIC [None]
  - RENAL DISORDER [None]
  - RESPIRATORY RATE INCREASED [None]
  - RESPIRATORY TRACT CONGESTION [None]
  - SINUS HEADACHE [None]
